FAERS Safety Report 25569200 (Version 1)
Quarter: 2025Q3

REPORT INFORMATION
  Report Type: Spontaneous
  Country: ZA (occurrence: ZA)
  Receive Date: 20250716
  Receipt Date: 20250716
  Transmission Date: 20251020
  Serious: Yes (Death)
  Sender: AMGEN
  Company Number: ZA-AMGEN-ZAFSP2025136472

PATIENT

DRUGS (1)
  1. BEVACIZUMAB [Suspect]
     Active Substance: BEVACIZUMAB
     Indication: Retinopathy of prematurity

REACTIONS (2)
  - Death [Fatal]
  - Off label use [Unknown]
